FAERS Safety Report 9146506 (Version 1)
Quarter: 2013Q1

REPORT INFORMATION
  Report Type: Report from Study
  Country: US (occurrence: DK)
  Receive Date: 20130307
  Receipt Date: 20130307
  Transmission Date: 20140127
  Serious: Yes (Hospitalization, Other)
  Sender: FDA-Public Use
  Company Number: DK-PFIZER INC-2013SP000887

PATIENT
  Age: 75 Year
  Sex: Female
  Weight: 65 kg

DRUGS (10)
  1. FLUOROURACIL [Suspect]
     Indication: BREAST CANCER
     Dosage: 900 MG, EVERY 3 WEEKS
     Route: 042
  2. EPIRUBICIN HYDROCHLORIDE [Suspect]
     Indication: BREAST CANCER
     Dosage: 150 MG, EVERY 3 WEEKS
     Route: 042
  3. CYCLOPHOSPHAMIDE [Suspect]
     Indication: BREAST CANCER
     Dosage: 900 MG, EVERY 3 WEEKS
     Route: 042
  4. PEGFILGRASTIM [Suspect]
     Dosage: UNK
  5. PREDNISOLONE [Concomitant]
     Dosage: UNK
     Dates: start: 20121114
  6. ONDANSETRON [Concomitant]
     Dosage: UNK
     Dates: start: 20121114
  7. APREPITANT [Concomitant]
     Dosage: UNK
     Dates: start: 20121114
  8. EMPERAL [Concomitant]
     Dosage: UNK
     Dates: start: 20121114
  9. MULTIVITAMINS [Concomitant]
     Dosage: UNK
  10. IRON [Concomitant]
     Dosage: UNK

REACTIONS (2)
  - Febrile neutropenia [Recovered/Resolved]
  - Pyrexia [Recovered/Resolved]
